FAERS Safety Report 25192635 (Version 1)
Quarter: 2025Q2

REPORT INFORMATION
  Report Type: Spontaneous
  Country: US (occurrence: US)
  Receive Date: 20250414
  Receipt Date: 20250414
  Transmission Date: 20250716
  Serious: No
  Sender: LEXICON PHARMACEUTICALS
  Company Number: US-LEX-000705

PATIENT
  Age: 55 Year
  Sex: Female

DRUGS (12)
  1. INPEFA [Suspect]
     Active Substance: SOTAGLIFLOZIN
     Indication: Product used for unknown indication
     Route: 048
     Dates: start: 20241209, end: 20250317
  2. ENTRESTO [Concomitant]
     Active Substance: SACUBITRIL\VALSARTAN
  3. PREDNISONE [Concomitant]
     Active Substance: PREDNISONE
  4. METOPROLOL TARTRATE [Concomitant]
     Active Substance: METOPROLOL TARTRATE
  5. MAGNESIUM [Concomitant]
     Active Substance: MAGNESIUM
  6. FAMOTIDINE [Concomitant]
     Active Substance: FAMOTIDINE
  7. IVABRADINE [Concomitant]
     Active Substance: IVABRADINE
  8. DAPSONE [Concomitant]
     Active Substance: DAPSONE
  9. CLOTRIMAZOLE [Concomitant]
     Active Substance: CLOTRIMAZOLE
  10. ASPIRIN [Concomitant]
     Active Substance: ASPIRIN
  11. ATORVASTATIN [Concomitant]
     Active Substance: ATORVASTATIN
  12. AMLODIPINE [Concomitant]
     Active Substance: AMLODIPINE BESYLATE

REACTIONS (4)
  - Eye irritation [Recovered/Resolved]
  - Diplopia [Recovered/Resolved]
  - Lacrimation increased [Recovered/Resolved]
  - Vision blurred [Recovered/Resolved]
